FAERS Safety Report 6992526-1 (Version None)
Quarter: 2010Q3

REPORT INFORMATION
  Report Type: 
  Country: None (occurrence: None)
  Receive Date: 20100917
  Receipt Date: 20100915
  Transmission Date: 20110219
  Serious: Yes (Life-Threatening, Hospitalization)
  Sender: FDA-Public Use
  Company Number: IT-ROCHE-671906

PATIENT
  Sex: Female
  Weight: 55 kg

DRUGS (4)
  1. TOCILIZUMAB [Suspect]
     Dosage: FORM: INFUSION
     Route: 042
     Dates: end: 20091118
  2. TOCILIZUMAB [Suspect]
     Dosage: PERMANENTLY DISCONTINUED.
     Route: 042
     Dates: end: 20100125
  3. BLINDED TOCILIZUMAB [Suspect]
     Dosage: RECEIVED IN WEEK 1-12 ONLY.
     Route: 042
     Dates: start: 20081105
  4. FROBEN [Concomitant]
     Dosage: FREQUENCY: AS REQUIRED.
     Dates: start: 20080813

REACTIONS (3)
  - CARDIAC FAILURE [None]
  - HISTIOCYTOSIS HAEMATOPHAGIC [None]
  - PULMONARY VENO-OCCLUSIVE DISEASE [None]
